FAERS Safety Report 7701595-2 (Version None)
Quarter: 2011Q3

REPORT INFORMATION
  Report Type: 
  Country: None (occurrence: None)
  Receive Date: 20110822
  Receipt Date: 20110321
  Transmission Date: 20111222
  Serious: No
  Sender: FDA-Public Use
  Company Number: US-BAYER-2011-024651

PATIENT
  Age: 41 Year
  Sex: Female

DRUGS (1)
  1. MIRENA [Suspect]
     Indication: CONTRACEPTION
     Dosage: 20 MCG QD
     Route: 015
     Dates: start: 20110228

REACTIONS (3)
  - VAGINAL ODOUR [None]
  - VAGINAL HAEMORRHAGE [None]
  - DISCOMFORT [None]
